FAERS Safety Report 21887694 (Version 1)
Quarter: 2023Q1

REPORT INFORMATION
  Report Type: Report from Study
  Country: US (occurrence: US)
  Receive Date: 20230120
  Receipt Date: 20230120
  Transmission Date: 20230418
  Serious: No
  Sender: FDA-Public Use
  Company Number: US-ABBVIE-4244189

PATIENT
  Sex: Male

DRUGS (1)
  1. SKYRIZI [Suspect]
     Active Substance: RISANKIZUMAB-RZAA
     Indication: Psoriasis
     Dosage: AT WEEK 4 THEN EVERY 12 WEEKS
     Route: 058
     Dates: end: 20221210

REACTIONS (3)
  - Infection [Recovering/Resolving]
  - Sputum discoloured [Not Recovered/Not Resolved]
  - Nasal congestion [Not Recovered/Not Resolved]
